FAERS Safety Report 6409957-0 (Version None)
Quarter: 2009Q4

REPORT INFORMATION
  Report Type: 
  Country: None (occurrence: None)
  Receive Date: 20091022
  Receipt Date: 20091014
  Transmission Date: 20100525
  Serious: Yes (Hospitalization)
  Sender: FDA-Public Use
  Company Number: JP-ASTRAZENECA-2009SE20557

PATIENT
  Age: 67 Year
  Sex: Male

DRUGS (2)
  1. XYLOCAINE [Suspect]
     Indication: LOCAL ANAESTHESIA
     Dosage: SPRAYED TWICE.
     Route: 049
     Dates: start: 20091008, end: 20091008
  2. BOSMIN [Suspect]
     Indication: LOCAL ANAESTHESIA
     Route: 045
     Dates: start: 20091008, end: 20091008

REACTIONS (1)
  - ANAPHYLACTIC SHOCK [None]
